FAERS Safety Report 10098225 (Version 1)
Quarter: 2014Q2

REPORT INFORMATION
  Report Type: Spontaneous
  Country: US (occurrence: US)
  Receive Date: 20140423
  Receipt Date: 20140423
  Transmission Date: 20141212
  Serious: No
  Sender: FDA-Public Use
  Company Number: US-BRISTOL-MYERS SQUIBB COMPANY-20222196

PATIENT
  Age: 8 Decade
  Sex: Male

DRUGS (1)
  1. IPILIMUMAB [Suspect]
     Indication: MALIGNANT MELANOMA
     Dates: start: 2014

REACTIONS (2)
  - Blood pressure diastolic increased [Recovered/Resolved]
  - Chills [Recovered/Resolved]
